APPROVED DRUG PRODUCT: ARISTOCORT A
Active Ingredient: TRIAMCINOLONE ACETONIDE
Strength: 0.025%
Dosage Form/Route: CREAM;TOPICAL
Application: A088818 | Product #001
Applicant: ASTELLAS PHARMA US INC
Approved: Oct 16, 1984 | RLD: No | RS: No | Type: DISCN